FAERS Safety Report 7707382-3 (Version None)
Quarter: 2011Q3

REPORT INFORMATION
  Report Type: 
  Country: None (occurrence: None)
  Receive Date: 20110824
  Receipt Date: 20110502
  Transmission Date: 20111222
  Serious: No
  Sender: FDA-Public Use
  Company Number: US-MYLANLABS-2011S1009217

PATIENT

DRUGS (1)
  1. SUMATRIPTAN SUCCINATE [Suspect]

REACTIONS (1)
  - RASH [None]
